FAERS Safety Report 17280023 (Version 10)
Quarter: 2020Q3

REPORT INFORMATION
  Report Type: Report from Study
  Country: None (occurrence: CO)
  Receive Date: 20200117
  Receipt Date: 20200821
  Transmission Date: 20201102
  Serious: Yes (Hospitalization, Other)
  Sender: FDA-Public Use
  Company Number: CO-ABBVIE-20K-036-3235635-00

PATIENT
  Age: 58 Year
  Sex: Male
  Weight: 86 kg

DRUGS (4)
  1. DICLOFENAC [Concomitant]
     Active Substance: DICLOFENAC
     Indication: PRODUCT USED FOR UNKNOWN INDICATION
  2. IMBRUVICA [Suspect]
     Active Substance: IBRUTINIB
     Indication: CHRONIC LYMPHOCYTIC LEUKAEMIA
     Route: 048
     Dates: start: 20191205, end: 20191219
  3. PREDNISOLONE. [Concomitant]
     Active Substance: PREDNISOLONE
     Indication: PRODUCT USED FOR UNKNOWN INDICATION
  4. COMPLEX B                          /06817001/ [Concomitant]
     Indication: PRODUCT USED FOR UNKNOWN INDICATION

REACTIONS (12)
  - Inguinal mass [Not Recovered/Not Resolved]
  - Pleural effusion [Recovering/Resolving]
  - Adverse event [Not Recovered/Not Resolved]
  - Pyrexia [Recovering/Resolving]
  - Pain [Not Recovered/Not Resolved]
  - Pain in extremity [Not Recovered/Not Resolved]
  - Abdominal pain [Recovering/Resolving]
  - Infection [Recovering/Resolving]
  - Testicular swelling [Not Recovered/Not Resolved]
  - Peripheral swelling [Not Recovered/Not Resolved]
  - Chromaturia [Recovering/Resolving]
  - Mass [Recovering/Resolving]

NARRATIVE: CASE EVENT DATE: 201912
